FAERS Safety Report 15832396 (Version 1)
Quarter: 2018Q4

REPORT INFORMATION
  Report Type: Spontaneous
  Country: US (occurrence: US)
  Receive Date: 20181219
  Receipt Date: 20181219
  Transmission Date: 20190205
  Serious: No
  Sender: FDA-Public Use
  Company Number: None

PATIENT
  Age: 72 Year
  Sex: Female

DRUGS (1)
  1. ENBREL [Suspect]
     Active Substance: ETANERCEPT
     Indication: RHEUMATOID ARTHRITIS
     Dosage: AS DIRECTED
     Route: 058
     Dates: start: 201807

REACTIONS (8)
  - Gait disturbance [None]
  - Sinus headache [None]
  - Peripheral swelling [None]
  - Sinusitis [None]
  - Psoriasis [None]
  - Skin exfoliation [None]
  - Erythema [None]
  - Drug ineffective [None]
